FAERS Safety Report 23737844 (Version 1)
Quarter: 2024Q2

REPORT INFORMATION
  Report Type: Spontaneous
  Country: US (occurrence: None)
  Receive Date: 20240412
  Receipt Date: 20240412
  Transmission Date: 20240716
  Serious: Yes (Other)
  Sender: FDA-Public Use
  Company Number: None

PATIENT
  Age: 58 Year
  Sex: Female
  Weight: 145.35 kg

DRUGS (11)
  1. WEGOVY [Suspect]
     Active Substance: SEMAGLUTIDE
     Indication: Weight decreased
     Route: 030
  2. LISINOPRIL [Concomitant]
     Active Substance: LISINOPRIL
  3. ALBUTEROL [Concomitant]
     Active Substance: ALBUTEROL
  4. SPIRVA [Concomitant]
  5. XANAX [Concomitant]
     Active Substance: ALPRAZOLAM
  6. EFFEXOR [Concomitant]
     Active Substance: VENLAFAXINE HYDROCHLORIDE
  7. ELIQUIS [Concomitant]
     Active Substance: APIXABAN
  8. VITAMIN B-COMPLEX [Concomitant]
     Active Substance: DEXPANTHENOL\NIACINAMIDE\PYRIDOXINE HYDROCHLORIDE\RIBOFLAVIN 5^-PHOSPHATE SODIUM\THIAMINE HYDROCHLOR
  9. VITAMIN D NOS [Concomitant]
     Active Substance: VITAMIN D NOS
  10. COENZYME Q10 [Concomitant]
     Active Substance: DIETARY SUPPLEMENT\UBIDECARENONE
  11. VITAMINS [Concomitant]
     Active Substance: VITAMINS

REACTIONS (3)
  - Vomiting [None]
  - Dehydration [None]
  - Illness [None]

NARRATIVE: CASE EVENT DATE: 20240402
